FAERS Safety Report 6579702-7 (Version None)
Quarter: 2010Q1

REPORT INFORMATION
  Report Type: 
  Country: None (occurrence: None)
  Receive Date: 20100212
  Receipt Date: 20100202
  Transmission Date: 20100710
  Serious: Yes (Other)
  Sender: FDA-Public Use
  Company Number: US-ROCHE-683797

PATIENT
  Sex: Female
  Weight: 47.6 kg

DRUGS (2)
  1. BONIVA [Suspect]
     Indication: OSTEOPOROSIS
     Route: 048
     Dates: start: 20060101
  2. ESTROGEN [Concomitant]

REACTIONS (5)
  - ARTHRITIS [None]
  - BACK PAIN [None]
  - MYALGIA [None]
  - PLANTAR FASCIITIS [None]
  - ROTATOR CUFF SYNDROME [None]
